FAERS Safety Report 14446688 (Version 1)
Quarter: 2018Q1

REPORT INFORMATION
  Report Type: Spontaneous
  Country: US (occurrence: US)
  Receive Date: 20180126
  Receipt Date: 20180126
  Transmission Date: 20180509
  Serious: No
  Sender: FDA-Public Use
  Company Number: US-ABBVIE-17K-163-2112449-00

PATIENT
  Sex: Female

DRUGS (1)
  1. HUMIRA [Suspect]
     Active Substance: ADALIMUMAB
     Indication: RHEUMATOID ARTHRITIS
     Route: 058

REACTIONS (8)
  - Therapeutic response shortened [Unknown]
  - Injection site pain [Not Recovered/Not Resolved]
  - Headache [Unknown]
  - Pain [Unknown]
  - Injection site reaction [Unknown]
  - Hangover [Unknown]
  - Injection site pain [Unknown]
  - Nausea [Unknown]
